FAERS Safety Report 6012668-7 (Version None)
Quarter: 2008Q4

REPORT INFORMATION
  Report Type: 
  Country: None (occurrence: None)
  Receive Date: 20081217
  Receipt Date: 20081209
  Transmission Date: 20090506
  Serious: Yes (Hospitalization)
  Sender: FDA-Public Use
  Company Number: TPG2008A01433

PATIENT
  Age: 68 Year
  Sex: Male

DRUGS (5)
  1. COMPETACT   (PIOGLITAZONE  HCL, MRTFORMIN HCL) [Suspect]
     Indication: TYPE 2 DIABETES MELLITUS
     Dosage: 30 MG PIOGLITAZONE / 1700 MG METFORMIN   PER ORAL
     Route: 048
     Dates: start: 20080319, end: 20080623
  2. CARVEDILOL [Concomitant]
  3. CENIPRES (ENALAPRIL/NITRENDIPINE)(ENALAPRIL) [Concomitant]
  4. CENIPRES (ENALAPRIL/NITRENDIPINE)(NITRENDIPINE) [Concomitant]
  5. MARCUMAR [Concomitant]

REACTIONS (9)
  - AORTIC VALVE SCLEROSIS [None]
  - ARRHYTHMIA [None]
  - ATRIAL FIBRILLATION [None]
  - CARDIAC FAILURE [None]
  - DYSPNOEA [None]
  - OEDEMA PERIPHERAL [None]
  - PLEURAL EFFUSION [None]
  - PULMONARY CONGESTION [None]
  - TACHYCARDIA [None]
